FAERS Safety Report 7526520-9 (Version None)
Quarter: 2011Q2

REPORT INFORMATION
  Report Type: 
  Country: None (occurrence: None)
  Receive Date: 20110606
  Receipt Date: 20110525
  Transmission Date: 20111010
  Serious: Yes (Hospitalization, Other)
  Sender: FDA-Public Use
  Company Number: US-BAYER-2011-045801

PATIENT
  Age: 34 Year
  Sex: Female

DRUGS (2)
  1. CIPROFLOXACIN HCL [Suspect]
     Indication: POST PROCEDURAL INFECTION
     Dosage: UNK, BID
     Route: 048
     Dates: start: 20110301, end: 20110521
  2. TYLENOL PM [Concomitant]

REACTIONS (4)
  - PYREXIA [None]
  - DIZZINESS [None]
  - SYNCOPE [None]
  - HAEMOGLOBIN DECREASED [None]
